FAERS Safety Report 16041332 (Version 1)
Quarter: 2019Q2

REPORT INFORMATION
  Report Type: Spontaneous
  Country: US (occurrence: US)
  Receive Date: 20190305
  Receipt Date: 20190305
  Transmission Date: 20190711
  Serious: Yes (Other)
  Sender: FDA-Public Use
  Company Number: None

PATIENT
  Sex: Male

DRUGS (7)
  1. PREDNISONE 20 MG TABLETS [Concomitant]
     Active Substance: PREDNISONE
     Dates: start: 20190106
  2. FOLIC ACID 1000MCG TABLETS [Concomitant]
     Dates: start: 20190222
  3. ONDANSETRON 8MG TABLETS [Concomitant]
     Active Substance: ONDANSETRON HYDROCHLORIDE
     Dates: start: 20190208
  4. HYDROXYCHLOROQUINE 200MG TABLETS [Concomitant]
     Active Substance: HYDROXYCHLOROQUINE
     Dates: start: 20181010
  5. QUETAPING 100MG TABLETS [Concomitant]
     Dates: start: 20190212
  6. RASUVO [Suspect]
     Active Substance: METHOTREXATE SODIUM
     Indication: RHEUMATOID ARTHRITIS
     Dosage: ?          OTHER FREQUENCY:ONCE A WEEK;?
     Route: 058
  7. PREDNISONE 5MG TABLETS [Concomitant]
     Active Substance: PREDNISONE
     Dates: start: 20181212

REACTIONS (1)
  - Amnesia [None]
